FAERS Safety Report 8896265 (Version 1)
Quarter: 2012Q4

REPORT INFORMATION
  Report Type: Spontaneous
  Country: US (occurrence: None)
  Receive Date: 20121106
  Receipt Date: 20121106
  Transmission Date: 20130627
  Serious: Yes (Life-Threatening, Hospitalization, Disabling)
  Sender: FDA-Public Use
  Company Number: None

PATIENT
  Age: 28 Year
  Sex: Female
  Weight: 61.24 kg

DRUGS (1)
  1. CLOMIFENE CITRATE [Suspect]
     Indication: ANOVULATION
     Dosage: 50MG 3 TIMES A DAY PO
     Route: 048
     Dates: start: 20120706, end: 20120710

REACTIONS (6)
  - Multiple pregnancy [None]
  - Maternal exposure before pregnancy [None]
  - Ectopic pregnancy termination [None]
  - Ovarian hyperstimulation syndrome [None]
  - Dizziness postural [None]
  - Ovarian cyst [None]
